FAERS Safety Report 7788722-6 (Version None)
Quarter: 2011Q3

REPORT INFORMATION
  Report Type: 
  Country: None (occurrence: None)
  Receive Date: 20110928
  Receipt Date: 20110913
  Transmission Date: 20111222
  Serious: Yes (Other)
  Sender: FDA-Public Use
  Company Number: FK201101978

PATIENT
  Age: 50 Year
  Sex: Male

DRUGS (2)
  1. GEMCITABINE [Suspect]
     Indication: SMALL INTESTINE CARCINOMA
     Dosage: 1000 MG/M2
  2. RADIOTHERAPY (THERAPEUTIC RADIOPHARMACEUTICALS) [Concomitant]

REACTIONS (4)
  - MUSCLE NECROSIS [None]
  - PAIN IN EXTREMITY [None]
  - MYOSITIS [None]
  - OEDEMA [None]
